FAERS Safety Report 9646001 (Version 1)
Quarter: 2013Q4

REPORT INFORMATION
  Report Type: Report from Study
  Country: TH (occurrence: TH)
  Receive Date: 20131025
  Receipt Date: 20131025
  Transmission Date: 20140711
  Serious: Yes (Hospitalization)
  Sender: FDA-Public Use
  Company Number: TH-GLAXOSMITHKLINE-B0935500A

PATIENT
  Age: 77 Year
  Sex: Male
  Weight: 50 kg

DRUGS (9)
  1. OMACOR [Suspect]
     Indication: MYOCARDIAL INFARCTION
     Dosage: 1000MG PER DAY
     Route: 048
     Dates: start: 20130701, end: 20130928
  2. TICAGRELOR [Concomitant]
     Dosage: 90MG TWICE PER DAY
     Route: 048
     Dates: start: 20130920
  3. WARFARIN [Concomitant]
     Dosage: 1.5MG PER DAY
     Route: 048
     Dates: start: 20131004
  4. NITRAZEPAM [Concomitant]
     Dosage: 15MG PER DAY
     Route: 048
     Dates: start: 20131008
  5. OMEPRAZOLE [Concomitant]
     Dosage: 20MG PER DAY
     Route: 048
     Dates: start: 20130920
  6. ENOXAPARIN SODIUM [Concomitant]
     Dosage: 60MG PER DAY
     Route: 058
     Dates: start: 20130930
  7. SPIRONOLACTONE [Concomitant]
     Dosage: 25MG PER DAY
     Route: 048
     Dates: start: 20131001
  8. ATORVASTATIN [Concomitant]
     Dosage: 20MG PER DAY
     Route: 048
     Dates: start: 20131001
  9. L-THYROXINE [Concomitant]
     Dosage: 25MCG PER DAY
     Route: 048
     Dates: start: 20131001

REACTIONS (2)
  - Loss of consciousness [Recovered/Resolved]
  - Hypotension [Recovered/Resolved]
